FAERS Safety Report 7716110-7 (Version None)
Quarter: 2011Q3

REPORT INFORMATION
  Report Type: 
  Country: None (occurrence: None)
  Receive Date: 20110829
  Receipt Date: 20110819
  Transmission Date: 20111222
  Serious: Yes (Hospitalization)
  Sender: FDA-Public Use
  Company Number: US-GLAXOSMITHKLINE-A0942565A

PATIENT
  Age: 46 Year
  Sex: Male
  Weight: 127.4 kg

DRUGS (11)
  1. AVANDIA [Suspect]
     Indication: DIABETES MELLITUS
     Dosage: 8MG TWICE PER DAY
     Route: 065
     Dates: end: 20100101
  2. GLYSET [Suspect]
     Indication: DIABETES MELLITUS
     Dosage: 50MG THREE TIMES PER DAY
     Route: 065
  3. INSULIN [Suspect]
     Indication: DIABETES MELLITUS
     Route: 065
  4. ACCUPRIL [Suspect]
     Indication: HYPERTENSION
     Dosage: 40MG TWICE PER DAY
     Route: 065
  5. GLUCOPHAGE [Suspect]
     Indication: DIABETES MELLITUS
     Dosage: 1000MG PER DAY
     Route: 065
     Dates: end: 20100101
  6. METFORMIN HYDROCHLORIDE [Concomitant]
     Indication: DIABETES MELLITUS
     Dosage: 500MG TWICE PER DAY
  7. HUMALOG [Concomitant]
     Indication: DIABETES MELLITUS
  8. VIAGRA [Suspect]
     Dosage: 100MG AS REQUIRED
     Route: 065
  9. LASIX [Concomitant]
     Indication: ILL-DEFINED DISORDER
     Dosage: 40MG THREE TIMES PER DAY
  10. AMARYL [Suspect]
     Indication: DIABETES MELLITUS
     Dosage: 4MG TWICE PER DAY
     Route: 065
  11. LANTUS [Concomitant]
     Indication: DIABETES MELLITUS
     Dosage: 15UNIT TWICE PER DAY

REACTIONS (2)
  - OVERDOSE [None]
  - THROMBOSIS [None]
